FAERS Safety Report 25390469 (Version 2)
Quarter: 2025Q2

REPORT INFORMATION
  Report Type: Spontaneous
  Country: FI (occurrence: FI)
  Receive Date: 20250603
  Receipt Date: 20250610
  Transmission Date: 20250716
  Serious: Yes (Death, Other)
  Sender: MYLAN
  Company Number: FI-INDIVIOR UK LIMITED-INDV-163039-2025

PATIENT
  Age: 39 Year
  Sex: Male

DRUGS (12)
  1. PREGABALIN [Suspect]
     Active Substance: PREGABALIN
     Indication: Product used for unknown indication
  2. PREGABALIN [Suspect]
     Active Substance: PREGABALIN
     Route: 065
  3. PREGABALIN [Suspect]
     Active Substance: PREGABALIN
     Route: 065
  4. PREGABALIN [Suspect]
     Active Substance: PREGABALIN
  5. BUPRENORPHINE [Suspect]
     Active Substance: BUPRENORPHINE
     Indication: Product used for unknown indication
  6. BUPRENORPHINE [Suspect]
     Active Substance: BUPRENORPHINE
     Route: 065
  7. BUPRENORPHINE [Suspect]
     Active Substance: BUPRENORPHINE
     Route: 065
  8. BUPRENORPHINE [Suspect]
     Active Substance: BUPRENORPHINE
  9. DIAZEPAM [Suspect]
     Active Substance: DIAZEPAM
     Indication: Product used for unknown indication
  10. DIAZEPAM [Suspect]
     Active Substance: DIAZEPAM
     Route: 065
  11. DIAZEPAM [Suspect]
     Active Substance: DIAZEPAM
     Route: 065
  12. DIAZEPAM [Suspect]
     Active Substance: DIAZEPAM

REACTIONS (2)
  - Toxicity to various agents [Fatal]
  - Drug abuse [Unknown]
